FAERS Safety Report 7699863-6 (Version None)
Quarter: 2011Q3

REPORT INFORMATION
  Report Type: 
  Country: None (occurrence: None)
  Receive Date: 20110822
  Receipt Date: 20110808
  Transmission Date: 20111222
  Serious: Yes (Hospitalization)
  Sender: FDA-Public Use
  Company Number: US-CELGENEUS-163-21880-11081099

PATIENT
  Sex: Female

DRUGS (2)
  1. REVLIMID [Suspect]
     Indication: MULTIPLE MYELOMA
     Dosage: 25 MILLIGRAM
     Route: 048
     Dates: start: 20100801
  2. VELCADE [Concomitant]
     Route: 065

REACTIONS (4)
  - COLITIS [None]
  - CARDIAC FAILURE CONGESTIVE [None]
  - DRUG INTOLERANCE [None]
  - CLOSTRIDIAL INFECTION [None]
